FAERS Safety Report 10132644 (Version 2)
Quarter: 2014Q2

REPORT INFORMATION
  Report Type: Spontaneous
  Country: US (occurrence: US)
  Receive Date: 20140428
  Receipt Date: 20140428
  Transmission Date: 20141212
  Serious: No
  Sender: FDA-Public Use
  Company Number: US-MALLINCKRODT-T201401541

PATIENT
  Age: 63 Year
  Sex: Female
  Weight: 83.9 kg

DRUGS (7)
  1. HYDROCODONE/ACETAMINOPHEN [Suspect]
     Indication: PAIN
     Dosage: 7.5/325 MG, TID
     Route: 048
     Dates: start: 20140310
  2. EXFORGE [Concomitant]
     Indication: HYPERTENSION
     Dosage: 10/320 MG DAILY
     Route: 048
  3. LEVOTHYROXINE [Concomitant]
     Indication: HYPOTHYROIDISM
     Dosage: 50 MCG DAILY
     Route: 048
     Dates: start: 2012
  4. TRILIPIX [Concomitant]
     Indication: HYPERCHOLESTEROLAEMIA
     Dosage: 135 MG DAILY
     Route: 048
     Dates: start: 2012
  5. OMEPRAZOLE [Concomitant]
     Indication: ABDOMINAL DISCOMFORT
     Dosage: 40 MG DAILY
     Route: 048
     Dates: start: 2012
  6. COREG CR [Concomitant]
     Indication: HYPERTENSION
     Dosage: 20 MG DAILY
     Dates: start: 2009
  7. HYDROCODONE BITARTRATE AND ACETAMINOPHEN [Concomitant]
     Dosage: 7.5/325 MG

REACTIONS (4)
  - Headache [Recovered/Resolved]
  - Erythema [Recovered/Resolved]
  - Swelling face [Recovered/Resolved]
  - Eye swelling [Recovered/Resolved]
